FAERS Safety Report 6398728-X (Version None)
Quarter: 2009Q4

REPORT INFORMATION
  Report Type: 
  Country: None (occurrence: None)
  Receive Date: 20091013
  Receipt Date: 20091005
  Transmission Date: 20100525
  Serious: Yes (Hospitalization)
  Sender: FDA-Public Use
  Company Number: PHHY2009DE36648

PATIENT
  Sex: Male
  Weight: 68.6 kg

DRUGS (5)
  1. SANDOSTATIN LAR [Suspect]
     Indication: PARATHYROID TUMOUR MALIGNANT
     Dosage: 30 MG MONTHLY
     Route: 030
     Dates: start: 20080301
  2. SANDOSTATIN LAR [Suspect]
     Indication: DIARRHOEA
  3. SANDOSTATIN [Suspect]
     Indication: DIARRHOEA
     Dosage: 500 UG, BID
     Route: 058
     Dates: start: 20090811
  4. SANDOSTATIN [Suspect]
     Dosage: 250 UG, BID
     Route: 058
  5. SANDOSTATIN [Suspect]
     Dosage: 1000 UG PER DAY
     Route: 058

REACTIONS (4)
  - CHOLESTASIS [None]
  - HEPATIC ENZYME INCREASED [None]
  - LIPASE INCREASED [None]
  - PANCREATITIS [None]
